FAERS Safety Report 24869292 (Version 2)
Quarter: 2025Q1

REPORT INFORMATION
  Report Type: Spontaneous
  Country: MX (occurrence: MX)
  Receive Date: 20250121
  Receipt Date: 20250124
  Transmission Date: 20250409
  Serious: Yes (Death)
  Sender: BAYER HEALTHCARE PHARMACEUTICALS INC.
  Company Number: MX-BAYER-2025A008920

PATIENT
  Age: 27 Year
  Sex: Male

DRUGS (1)
  1. LAROTRECTINIB [Suspect]
     Active Substance: LAROTRECTINIB
     Indication: Neurofibrosarcoma
     Dosage: 100 MG, BID
     Route: 048
     Dates: start: 20220517, end: 20250105

REACTIONS (1)
  - Neurofibrosarcoma [Fatal]

NARRATIVE: CASE EVENT DATE: 20220501
